FAERS Safety Report 18714824 (Version 1)
Quarter: 2021Q1

REPORT INFORMATION
  Report Type: Report from Study
  Country: US (occurrence: US)
  Receive Date: 20210107
  Receipt Date: 20210107
  Transmission Date: 20210419
  Serious: Yes (Death)
  Sender: FDA-Public Use
  Company Number: US-SEATTLE GENETICS-2020SGN04453

PATIENT
  Sex: Female

DRUGS (2)
  1. TUCATINIB [Suspect]
     Active Substance: TUCATINIB
     Indication: BREAST CANCER FEMALE
     Dosage: UNK
     Route: 065
  2. CAPECITABINE. [Concomitant]
     Active Substance: CAPECITABINE
     Dosage: UNK

REACTIONS (8)
  - Death [Fatal]
  - CSF pressure increased [Unknown]
  - Inappropriate schedule of product administration [Recovered/Resolved]
  - Adverse drug reaction [Recovered/Resolved]
  - Fatigue [Not Recovered/Not Resolved]
  - Nausea [Unknown]
  - Product dose omission issue [Unknown]
  - Diarrhoea [Unknown]
